FAERS Safety Report 9692240 (Version 1)
Quarter: 2013Q4

REPORT INFORMATION
  Report Type: Spontaneous
  Country: MX (occurrence: MX)
  Receive Date: 20131118
  Receipt Date: 20131118
  Transmission Date: 20140711
  Serious: Yes (Hospitalization)
  Sender: FDA-Public Use
  Company Number: MX-AMGEN-MEXSP2013080099

PATIENT
  Age: 61 Year
  Sex: Female

DRUGS (3)
  1. PROLIA [Suspect]
     Indication: PRODUCT USED FOR UNKNOWN INDICATION
     Dosage: UNK UNK, Q6MO
     Route: 058
     Dates: start: 20130503
  2. VITAMIN D                          /00107901/ [Concomitant]
     Indication: BLOOD CALCIUM ABNORMAL
  3. CALCITRIOL [Concomitant]
     Indication: BLOOD CALCIUM ABNORMAL

REACTIONS (1)
  - Gastroenteritis [Unknown]
